FAERS Safety Report 9132077 (Version 2)
Quarter: 2013Q2

REPORT INFORMATION
  Report Type: Report from Study
  Country: CN (occurrence: CN)
  Receive Date: 20130208
  Receipt Date: 20130404
  Transmission Date: 20140414
  Serious: Yes (Death)
  Sender: FDA-Public Use
  Company Number: CN-ROCHE-1188188

PATIENT
  Age: 74 Year
  Sex: Male
  Weight: 53 kg

DRUGS (4)
  1. CARBOPLATIN [Suspect]
     Indication: LUNG NEOPLASM MALIGNANT
     Dosage: DATE OF LAST DOSE PRIOR TO SAE: 16/MAY/2012
     Route: 042
     Dates: start: 20120222
  2. PACLITAXEL [Suspect]
     Indication: LUNG NEOPLASM MALIGNANT
     Dosage: DATE OF LAST DOSE PRIOR TO SAE: 16/MAY/2012
     Route: 042
     Dates: start: 20120222
  3. AMBROXOL HYDROCHLORIDE [Concomitant]
     Indication: COUGH
     Route: 048
     Dates: start: 20120828
  4. BEVACIZUMAB [Suspect]
     Indication: LUNG NEOPLASM MALIGNANT
     Dosage: DATE OF LAST DOSE PRIOR TO SAE: 21/NOV/2012
     Route: 042
     Dates: start: 20120222

REACTIONS (1)
  - Death [Fatal]
